FAERS Safety Report 8177967-1 (Version None)
Quarter: 2012Q1

REPORT INFORMATION
  Report Type: 
  Country: None (occurrence: None)
  Receive Date: 20120301
  Receipt Date: 20120223
  Transmission Date: 20120608
  Serious: Yes (Death, Hospitalization, Other)
  Sender: FDA-Public Use
  Company Number: BR-PFIZER INC-2012051105

PATIENT
  Age: 46 Year
  Sex: Female

DRUGS (1)
  1. RIFAMPIN [Suspect]
     Indication: LEPROMATOUS LEPROSY
     Dosage: 600 MG/DAY

REACTIONS (2)
  - DISSEMINATED INTRAVASCULAR COAGULATION [None]
  - HEPATIC NECROSIS [None]
